FAERS Safety Report 24042136 (Version 1)
Quarter: 2024Q3

REPORT INFORMATION
  Report Type: Spontaneous
  Country: CN (occurrence: CN)
  Receive Date: 20240702
  Receipt Date: 20240702
  Transmission Date: 20241016
  Serious: Yes (Disabling)
  Sender: PFIZER
  Company Number: CN-PFIZER INC-PV202400085620

PATIENT
  Age: 69 Year
  Sex: Female

DRUGS (6)
  1. METHYLPREDNISOLONE SODIUM SUCCINATE [Suspect]
     Active Substance: METHYLPREDNISOLONE SODIUM SUCCINATE
     Indication: Sjogren^s syndrome
     Dosage: 30 MG, 1X/DAY
     Route: 041
     Dates: start: 20240614, end: 20240622
  2. PIPERACILLIN AND TAZOBACTAM [Suspect]
     Active Substance: PIPERACILLIN SODIUM\TAZOBACTAM SODIUM
     Indication: Pneumonia bacterial
     Dosage: 4.5 G, 2X/DAY
     Route: 041
     Dates: start: 20240610, end: 20240622
  3. PANTOPRAZOLE SODIUM [Suspect]
     Active Substance: PANTOPRAZOLE SODIUM
     Indication: Chronic gastritis
     Dosage: 40 MG, 1X/DAY
     Route: 041
     Dates: start: 20240610, end: 20240622
  4. ISOSORBIDE MONONITRATE [Concomitant]
     Active Substance: ISOSORBIDE MONONITRATE
     Indication: Coronary artery disease
     Dosage: 20 MG, 2X/DAY
     Route: 048
     Dates: start: 20240610, end: 20240627
  5. BICYCLOL [Concomitant]
     Active Substance: BICYCLOL
     Indication: Transaminases increased
     Dosage: 50 MG, 3X/DAY
     Route: 048
     Dates: start: 20240610, end: 20240627
  6. ISOSORBIDE DINITRATE [Concomitant]
     Active Substance: ISOSORBIDE DINITRATE
     Indication: Coronary artery disease
     Dosage: 20 MG, 1X/DAY
     Dates: start: 20240613, end: 20240625

REACTIONS (3)
  - Blood alkaline phosphatase increased [Recovering/Resolving]
  - Gamma-glutamyltransferase increased [Recovering/Resolving]
  - Off label use [Unknown]

NARRATIVE: CASE EVENT DATE: 20240614
